FAERS Safety Report 19399624 (Version 1)
Quarter: 2021Q2

REPORT INFORMATION
  Report Type: Spontaneous
  Country: IT (occurrence: IT)
  Receive Date: 20210610
  Receipt Date: 20210610
  Transmission Date: 20210717
  Serious: Yes (Other)
  Sender: FDA-Public Use
  Company Number: NVSC2021IT125452

PATIENT
  Age: 59 Year
  Sex: Male

DRUGS (1)
  1. AMOXICILLINA E ACIDO CLAVULANICO SANDOZ A/S [Suspect]
     Active Substance: AMOXICILLIN\CLAVULANATE POTASSIUM
     Indication: ANTIBIOTIC PROPHYLAXIS
     Dosage: 2.2 G,QD
     Route: 042

REACTIONS (3)
  - Feeling hot [Unknown]
  - Rash [Unknown]
  - Blister [Unknown]

NARRATIVE: CASE EVENT DATE: 20210528
